FAERS Safety Report 23609821 (Version 1)
Quarter: 2024Q1

REPORT INFORMATION
  Report Type: Other
  Country: MX (occurrence: None)
  Receive Date: 20240308
  Receipt Date: 20240308
  Transmission Date: 20240409
  Serious: Yes (Disabling)
  Sender: FDA-Public Use
  Company Number: MX-ROCHE-3521054

PATIENT
  Age: 30 Year
  Sex: Female
  Weight: 52 kg

DRUGS (4)
  1. OCREVUS [Suspect]
     Active Substance: OCRELIZUMAB
     Indication: Multiple sclerosis
     Route: 042
     Dates: start: 20220301
  2. BOTOX [Concomitant]
     Active Substance: ONABOTULINUMTOXINA
  3. TIZANIDINE [Concomitant]
     Active Substance: TIZANIDINE
     Dosage: FREQUENCY WAS NOT REPORTED
  4. FLUOXETINE [Concomitant]
     Active Substance: FLUOXETINE HYDROCHLORIDE
     Dosage: IN THE MORNING

REACTIONS (3)
  - Visual impairment [Not Recovered/Not Resolved]
  - Dyschromatopsia [Not Recovered/Not Resolved]
  - Vision blurred [Not Recovered/Not Resolved]

NARRATIVE: CASE EVENT DATE: 20230901
